FAERS Safety Report 16984316 (Version 1)
Quarter: 2019Q4

REPORT INFORMATION
  Report Type: Spontaneous
  Country: US (occurrence: US)
  Receive Date: 20191101
  Receipt Date: 20191101
  Transmission Date: 20200122
  Serious: No
  Sender: FDA-Public Use
  Company Number: US-FARMAPROD-201906-0987

PATIENT
  Age: 76 Year
  Sex: Female

DRUGS (5)
  1. ARTIFICIAL TEARS [Concomitant]
     Active Substance: GLYCERIN\HYPROMELLOSES\POLYETHYLENE GLYCOL 400
     Dates: start: 20181030
  2. SYSTANE (HYPROMELLOSE 2910 (4000 MPA.S)) [Concomitant]
     Active Substance: HYPROMELLOSE 2910 (4000 MPA.S)
     Dates: start: 20190624
  3. OXERVATE [Suspect]
     Active Substance: CENEGERMIN-BKBJ
     Indication: KERATOPATHY
     Route: 047
     Dates: start: 20190603, end: 201907
  4. LOTEMAX [Concomitant]
     Active Substance: LOTEPREDNOL ETABONATE
     Indication: PRODUCT USED FOR UNKNOWN INDICATION
     Dates: start: 20181107
  5. POLYTRIM [Concomitant]
     Active Substance: POLYMYXIN B SULFATE\TRIMETHOPRIM SULFATE
     Dates: start: 20181010

REACTIONS (2)
  - Eye pain [Recovered/Resolved]
  - Ocular hyperaemia [Recovered/Resolved]

NARRATIVE: CASE EVENT DATE: 20190621
